FAERS Safety Report 4377002-7 (Version None)
Quarter: 2004Q2

REPORT INFORMATION
  Report Type: 
  Country: None (occurrence: None)
  Receive Date: 20040614
  Receipt Date: 20040408
  Transmission Date: 20050107
  Serious: Yes (Hospitalization, Other)
  Sender: FDA-Public Use
  Company Number: AU-BRISTOL-MYERS SQUIBB COMPANY-12555363

PATIENT
  Age: 60 Year
  Sex: Female
  Weight: 71 kg

DRUGS (8)
  1. CARBOPLATIN [Suspect]
     Indication: PERITONEAL CARCINOMA
     Dosage: CYCLE 2: 17MAR04; CYCLE 3: 07APR04; CYCLE 4: 12MAY04
     Route: 042
     Dates: start: 20040223, end: 20040223
  2. PACLITAXEL [Suspect]
     Indication: PERITONEAL CARCINOMA
     Dosage: CYCLE 2: 17MAR04; CYCLE 3: 07APR04; CYCLE 4: 12MAY04
     Route: 042
     Dates: start: 20040223, end: 20040223
  3. CAELYX [Suspect]
     Indication: PERITONEAL CARCINOMA
     Dosage: CYCLE 2: 07APR04
     Route: 042
     Dates: start: 20040223, end: 20040223
  4. ZOCOR [Concomitant]
     Indication: HYPERCHOLESTEROLAEMIA
  5. TROPISETRON [Concomitant]
     Dates: start: 20040223
  6. DEXAMETHASONE [Concomitant]
     Dates: start: 20040223
  7. RANITIDINE [Concomitant]
     Dates: start: 20040223
  8. DIPHENHYDRAMINE HCL [Concomitant]
     Dates: start: 20040223

REACTIONS (14)
  - BLOOD CULTURE POSITIVE [None]
  - CHILLS [None]
  - DEHYDRATION [None]
  - DIARRHOEA [None]
  - FEBRILE NEUTROPENIA [None]
  - HYPOTENSION [None]
  - NAUSEA [None]
  - PANCYTOPENIA [None]
  - PETECHIAE [None]
  - PLEURAL EFFUSION [None]
  - PYREXIA [None]
  - RASH [None]
  - URINARY TRACT INFECTION [None]
  - VOMITING [None]
